FAERS Safety Report 7909998-8 (Version None)
Quarter: 2011Q4

REPORT INFORMATION
  Report Type: 
  Country: None (occurrence: None)
  Receive Date: 20111111
  Receipt Date: 20111108
  Transmission Date: 20120403
  Serious: Yes (Other)
  Sender: FDA-Public Use
  Company Number: JP-ROCHE-802717

PATIENT
  Sex: Male

DRUGS (3)
  1. ACTEMRA [Suspect]
     Dosage: DOSAGE IS UNCERTAIN
     Route: 041
     Dates: start: 20110714, end: 20110913
  2. ACTEMRA [Suspect]
     Route: 041
     Dates: start: 20080924, end: 20081216
  3. ACTEMRA [Suspect]
     Indication: RHEUMATOID ARTHRITIS
     Route: 041
     Dates: start: 20080722, end: 20080826

REACTIONS (1)
  - JOINT SWELLING [None]
